FAERS Safety Report 24006293 (Version 1)
Quarter: 2024Q2

REPORT INFORMATION
  Report Type: Spontaneous
  Country: US (occurrence: None)
  Receive Date: 20240624
  Receipt Date: 20240624
  Transmission Date: 20240716
  Serious: Yes (Hospitalization)
  Sender: FDA-Public Use
  Company Number: None

PATIENT
  Age: 84 Year
  Sex: Male
  Weight: 105 kg

DRUGS (1)
  1. APIXABAN [Suspect]
     Active Substance: APIXABAN
     Indication: Atrial fibrillation
     Dosage: 2.5 MG BID PO?
     Route: 048
     Dates: start: 20210901

REACTIONS (7)
  - Gastrointestinal haemorrhage [None]
  - Faeces discoloured [None]
  - Abnormal faeces [None]
  - Dialysis [None]
  - Therapy interrupted [None]
  - Anaemia [None]
  - Gastrointestinal arteriovenous malformation [None]

NARRATIVE: CASE EVENT DATE: 20230719
